FAERS Safety Report 8836048 (Version 1)
Quarter: 2012Q4

REPORT INFORMATION
  Report Type: 
  Country: US (occurrence: US)
  Receive Date: 20121011
  Receipt Date: 20121011
  Transmission Date: 20130627
  Serious: No
  Sender: FDA-Public Use
  Company Number: US-009507513-1210USA002275

PATIENT
  Age: 53 None
  Sex: Female

DRUGS (3)
  1. PEG-INTRON [Suspect]
     Indication: HEPATITIS C
     Dosage: redipen
     Dates: start: 20120417, end: 20120928
  2. REBETOL [Suspect]
     Indication: HEPATITIS C
     Dosage: UNK
     Dates: start: 20120417, end: 20120928
  3. VICTRELIS [Suspect]
     Indication: HEPATITIS C
     Dosage: UNK
     Dates: start: 20120515, end: 20120928

REACTIONS (4)
  - Oedema peripheral [Unknown]
  - Weight increased [Unknown]
  - Dyspnoea [Unknown]
  - Drug ineffective [Unknown]
